FAERS Safety Report 9063778 (Version 1)
Quarter: 2013Q1

REPORT INFORMATION
  Report Type: Spontaneous
  Country: AU (occurrence: AU)
  Receive Date: 20130202
  Receipt Date: 20130202
  Transmission Date: 20140127
  Serious: Yes (Hospitalization, Other)
  Sender: FDA-Public Use
  Company Number: PHHY2012AU126483

PATIENT
  Sex: Male

DRUGS (1)
  1. SANDOSTATIN LAR [Suspect]
     Indication: NEUROENDOCRINE TUMOUR
     Dosage: 20 MG, UNK
     Dates: start: 201210, end: 201212

REACTIONS (3)
  - Blood pressure fluctuation [Recovering/Resolving]
  - Malignant neoplasm progression [Recovering/Resolving]
  - Atrial fibrillation [Recovering/Resolving]
